FAERS Safety Report 9957857 (Version 1)
Quarter: 2014Q1

REPORT INFORMATION
  Report Type: Report from Study
  Country: US (occurrence: US)
  Receive Date: 20140304
  Receipt Date: 20140304
  Transmission Date: 20141002
  Serious: No
  Sender: FDA-Public Use
  Company Number: US-ABBVIE-13P-163-1093896-00

PATIENT
  Sex: Female

DRUGS (1)
  1. HUMIRA [Suspect]
     Indication: ENTERITIS
     Route: 058
     Dates: start: 20121217, end: 20130201

REACTIONS (4)
  - Rash [Unknown]
  - Upper respiratory tract infection [Unknown]
  - Injection site scar [Unknown]
  - Drug ineffective [Unknown]
